FAERS Safety Report 7297042-8 (Version None)
Quarter: 2011Q1

REPORT INFORMATION
  Report Type: 
  Country: None (occurrence: None)
  Receive Date: 20110216
  Receipt Date: 20110210
  Transmission Date: 20110831
  Serious: Yes (Death, Life-Threatening, Hospitalization, Disabling)
  Sender: FDA-Public Use
  Company Number: JP-PFIZER INC-2010171391

PATIENT
  Age: 68 Year
  Sex: Female

DRUGS (12)
  1. BETAMETHASONE [Concomitant]
     Dosage: 0.5 MG, 1X/DAY
     Dates: start: 20101102
  2. NOVAMIN [Concomitant]
     Dosage: 5 MG, AS NEEDED
     Dates: start: 20101118
  3. MORPHINE HYDROCHLORIDE [Concomitant]
     Dosage: 10 MG, AS NEEDED
     Dates: start: 20101201
  4. FENTANYL CITRATE [Concomitant]
     Dosage: 1 MG, 1X/DAY
     Dates: start: 20101109
  5. METHYLNALTREXONE BROMIDE [Suspect]
     Indication: CONSTIPATION
     Dosage: 0.3 MG/KG, SINGLE
     Route: 058
     Dates: start: 20101210, end: 20101210
  6. TAKEPRON [Concomitant]
     Dosage: 15 MG, 1X/DAY
     Dates: start: 20101207
  7. SERENACE [Concomitant]
     Dosage: 1.5 MG, 1X/DAY
     Dates: start: 20101115
  8. NAIXAN [Concomitant]
     Dosage: 100 MG, 1X/DAY
     Dates: start: 20101102
  9. LASIX [Concomitant]
     Dosage: 40 MG, 1X/DAY
     Dates: start: 20101207
  10. ALDACTONE [Concomitant]
     Dosage: 25 MG, 1X/DAY
     Dates: start: 20101207
  11. FENTANYL CITRATE [Concomitant]
     Dosage: 4 MG, 1X/DAY
     Dates: start: 20101109
  12. MAGNESIUM OXIDE [Concomitant]
     Dosage: 750 MG, 1X/DAY
     Dates: start: 20101102

REACTIONS (22)
  - BLOOD BILIRUBIN INCREASED [None]
  - BLOOD CREATINE PHOSPHOKINASE INCREASED [None]
  - BLOOD POTASSIUM INCREASED [None]
  - OCCULT BLOOD [None]
  - ASPARTATE AMINOTRANSFERASE INCREASED [None]
  - MYOGLOBINAEMIA [None]
  - DISSEMINATED INTRAVASCULAR COAGULATION [None]
  - ABDOMINAL PAIN [None]
  - BACK PAIN [None]
  - RENAL FAILURE ACUTE [None]
  - THROMBOCYTOPENIA [None]
  - ALANINE AMINOTRANSFERASE INCREASED [None]
  - BONE MARROW DISORDER [None]
  - BLOOD URINE [None]
  - CHEST PAIN [None]
  - MALAISE [None]
  - BLOOD CREATININE INCREASED [None]
  - ACUTE HEPATIC FAILURE [None]
  - SHOCK [None]
  - BLOOD UREA INCREASED [None]
  - PROTEIN URINE PRESENT [None]
  - DRUG WITHDRAWAL SYNDROME [None]
